FAERS Safety Report 13413149 (Version 2)
Quarter: 2017Q4

REPORT INFORMATION
  Report Type: Report from Study
  Country: PT (occurrence: PT)
  Receive Date: 20170407
  Receipt Date: 20171018
  Transmission Date: 20180320
  Serious: Yes (Other)
  Sender: FDA-Public Use
  Company Number: PT-VIIV HEALTHCARE LIMITED-PT2017GSK049281

PATIENT
  Age: 27 Year
  Sex: Male

DRUGS (1)
  1. ABACAVIR SULPHATE [Suspect]
     Active Substance: ABACAVIR
     Indication: HIV INFECTION

REACTIONS (2)
  - Rash pruritic [Unknown]
  - Drug reaction with eosinophilia and systemic symptoms [Unknown]
